FAERS Safety Report 13794979 (Version 1)
Quarter: 2017Q3

REPORT INFORMATION
  Report Type: Spontaneous
  Country: FR (occurrence: FR)
  Receive Date: 20170726
  Receipt Date: 20170726
  Transmission Date: 20171127
  Serious: Yes (Hospitalization, Other)
  Sender: FDA-Public Use
  Company Number: FR-ACCORD-056401

PATIENT
  Age: 24 Year
  Sex: Male

DRUGS (7)
  1. ACTISKENAN [Concomitant]
     Active Substance: MORPHINE SULFATE
  2. DOLIPRANE [Concomitant]
     Active Substance: ACETAMINOPHEN
  3. FRESENIUS (PIPERACILLIN/TAZOBACTAM) [Suspect]
     Active Substance: PIPERACILLIN SODIUM\TAZOBACTAM SODIUM
     Indication: SEPSIS
     Dosage: TOTAL DOSE: 16 G
     Route: 042
     Dates: start: 20170421, end: 20170423
  4. ACUPAN [Concomitant]
     Active Substance: NEFOPAM HYDROCHLORIDE
  5. VANCOMYCIN SANDOZ [Suspect]
     Active Substance: VANCOMYCIN
     Indication: SEPSIS
     Route: 042
     Dates: start: 20170420, end: 20170423
  6. TOPALGIC (TRAMADOL) [Concomitant]
     Active Substance: TRAMADOL
  7. ONDANSETRAN ACCORD [Suspect]
     Active Substance: ONDANSETRON HYDROCHLORIDE
     Indication: PROPHYLAXIS OF NAUSEA AND VOMITING
     Dosage: TOTAL DOSE: 16 MG
     Route: 042
     Dates: start: 20170420, end: 20170425

REACTIONS (2)
  - Infusion site reaction [Unknown]
  - Thrombophlebitis [Unknown]

NARRATIVE: CASE EVENT DATE: 20170424
